FAERS Safety Report 20739146 (Version 1)
Quarter: 2022Q2

REPORT INFORMATION
  Report Type: Spontaneous
  Country: NL (occurrence: NL)
  Receive Date: 20220422
  Receipt Date: 20220422
  Transmission Date: 20220720
  Serious: Yes (Other)
  Sender: FDA-Public Use
  Company Number: NL-ASPEN-GLO2022NL002183

PATIENT

DRUGS (2)
  1. MELPHALAN [Suspect]
     Active Substance: MELPHALAN
     Indication: Neuroblastoma
     Dosage: UNK
     Route: 065
  2. BUSULFAN [Suspect]
     Active Substance: BUSULFAN
     Indication: Neuroblastoma
     Dosage: UNK
     Route: 065

REACTIONS (2)
  - Off label use [Unknown]
  - Venoocclusive liver disease [Unknown]
